FAERS Safety Report 25055258 (Version 1)
Quarter: 2025Q1

REPORT INFORMATION
  Report Type: Spontaneous
  Country: US (occurrence: US)
  Receive Date: 20250308
  Receipt Date: 20250308
  Transmission Date: 20250409
  Serious: No
  Sender: ABBVIE
  Company Number: US-ABBVIE-6169987

PATIENT
  Sex: Female

DRUGS (1)
  1. BOTOX COSMETIC [Suspect]
     Active Substance: ONABOTULINUMTOXINA
     Indication: Skin wrinkling
     Route: 065
     Dates: start: 20250211, end: 20250211

REACTIONS (3)
  - Eyelid disorder [Unknown]
  - Wrong technique in product usage process [Unknown]
  - Injection site injury [Unknown]

NARRATIVE: CASE EVENT DATE: 20250101
